FAERS Safety Report 8815669 (Version 2)
Quarter: 2012Q4

REPORT INFORMATION
  Report Type: 
  Country: US (occurrence: US)
  Receive Date: 20120928
  Receipt Date: 20121112
  Transmission Date: 20130627
  Serious: Yes (Hospitalization, Other)
  Sender: FDA-Public Use
  Company Number: US-MILLENNIUM PHARMACEUTICALS, INC.-2012-06409

PATIENT
  Age: 18 Month
  Sex: Male
  Weight: 9.31 kg

DRUGS (5)
  1. VELCADE [Suspect]
     Indication: ACUTE MYELOID LEUKAEMIA
     Dosage: 1.3 mg/m2, Cyclic
     Route: 040
     Dates: start: 20120906, end: 20120906
  2. CYTARABINE [Suspect]
     Indication: ACUTE MYELOID LEUKAEMIA
     Dosage: 3.3 mg/kg, Cyclic
     Route: 042
     Dates: start: 20120906, end: 20120915
  3. CYTARABINE [Suspect]
     Dosage: 30 mg, Cyclic
     Route: 037
     Dates: start: 20120905, end: 20120905
  4. DAUNORUBICIN HYDROCHLORIDE [Suspect]
     Indication: ACUTE MYELOID LEUKAEMIA
     Dosage: 1.7 mg/kg, Cyclic
     Route: 042
     Dates: start: 20120906, end: 20120910
  5. ETOPOSIDE [Suspect]
     Indication: ACUTE MYELOID LEUKAEMIA
     Dosage: 3.3 mg/kg, Cyclic
     Route: 042
     Dates: start: 20120906, end: 20120910

REACTIONS (3)
  - Tracheal stenosis [Not Recovered/Not Resolved]
  - Laryngeal oedema [Not Recovered/Not Resolved]
  - Hypoxic-ischaemic encephalopathy [Not Recovered/Not Resolved]
